FAERS Safety Report 8446313-8 (Version None)
Quarter: 2012Q2

REPORT INFORMATION
  Report Type: 
  Country: None (occurrence: None)
  Receive Date: 20120618
  Receipt Date: 20120611
  Transmission Date: 20120825
  Serious: Yes (Other)
  Sender: FDA-Public Use
  Company Number: CHPA2012BR012191

PATIENT
  Sex: Female
  Weight: 68 kg

DRUGS (1)
  1. NICOTINE [Suspect]
     Indication: SMOKING CESSATION THERAPY
     Dosage: 21 MG, QD
     Route: 062
     Dates: start: 20120501

REACTIONS (12)
  - APPLICATION SITE ERYTHEMA [None]
  - APPLICATION SITE PRURITUS [None]
  - WRONG TECHNIQUE IN DRUG USAGE PROCESS [None]
  - TREATMENT NONCOMPLIANCE [None]
  - OVERDOSE [None]
  - PRODUCT ADHESION ISSUE [None]
  - APATHY [None]
  - WOUND [None]
  - INFLUENZA [None]
  - IRRITABILITY [None]
  - APPLICATION SITE VESICLES [None]
  - SKIN REACTION [None]
